FAERS Safety Report 18414971 (Version 1)
Quarter: 2020Q4

REPORT INFORMATION
  Report Type: Spontaneous
  Country: US (occurrence: US)
  Receive Date: 20201022
  Receipt Date: 20201022
  Transmission Date: 20210114
  Serious: No
  Sender: FDA-Public Use
  Company Number: US-PFIZER INC-2020404240

PATIENT
  Sex: Male
  Weight: 106.59 kg

DRUGS (6)
  1. LYRICA [Suspect]
     Active Substance: PREGABALIN
     Indication: NEURALGIA
     Dosage: 200 MG, 2X/DAY (200MG TWICE A DAY)
  2. LYRICA [Suspect]
     Active Substance: PREGABALIN
     Indication: NEUROPATHY PERIPHERAL
     Dosage: 400 MG, 2X/DAY (400MG TWICE A DAY)
  3. LYRICA [Suspect]
     Active Substance: PREGABALIN
     Dosage: 100 MG, 2X/DAY (100MG TWICE A DAY)
  4. LYRICA [Suspect]
     Active Substance: PREGABALIN
     Dosage: 300 MG, 2X/DAY (TWO 150MG TWICE A DAY)
  5. LYRICA [Suspect]
     Active Substance: PREGABALIN
     Dosage: 50 MG, 2X/DAY (50MG TWICE A DAY)
  6. LYRICA [Suspect]
     Active Substance: PREGABALIN
     Dosage: 100 MG, 2X/DAY (100MG TWICE A DAY)

REACTIONS (10)
  - Hyperhidrosis [Unknown]
  - Dizziness [Unknown]
  - Diarrhoea [Unknown]
  - Visual impairment [Unknown]
  - Illness [Unknown]
  - Gait disturbance [Unknown]
  - Constipation [Unknown]
  - Overdose [Unknown]
  - Epigastric discomfort [Unknown]
  - Nausea [Unknown]
